FAERS Safety Report 9782291 (Version 1)
Quarter: 2013Q4

REPORT INFORMATION
  Report Type: Report from Study
  Country: CA (occurrence: CA)
  Receive Date: 20131226
  Receipt Date: 20131226
  Transmission Date: 20140711
  Serious: Yes (Other)
  Sender: FDA-Public Use
  Company Number: CA-JNJFOC-20131213380

PATIENT
  Sex: Female
  Weight: 85.9 kg

DRUGS (6)
  1. REMICADE [Suspect]
     Indication: CROHN^S DISEASE
     Route: 042
  2. IMURAN [Concomitant]
     Route: 065
  3. FOLIC ACID [Concomitant]
     Route: 065
  4. IRON [Concomitant]
     Route: 065
  5. LYRICA [Concomitant]
     Route: 065
  6. VITAMIN B12 [Concomitant]
     Route: 065

REACTIONS (1)
  - Malignant melanoma [Unknown]
